FAERS Safety Report 8336910-2 (Version None)
Quarter: 2012Q2

REPORT INFORMATION
  Report Type: 
  Country: None (occurrence: None)
  Receive Date: 20120504
  Receipt Date: 20110523
  Transmission Date: 20120825
  Serious: No
  Sender: FDA-Public Use
  Company Number: US-TEVA-2011002563

PATIENT
  Sex: Female
  Weight: 79.904 kg

DRUGS (7)
  1. XANAX [Concomitant]
     Dates: start: 20110401
  2. NUVIGIL [Suspect]
     Indication: FATIGUE
     Dosage: 125 MILLIGRAM;
     Route: 048
     Dates: start: 20110520
  3. LYRICA [Concomitant]
     Dates: start: 20060101
  4. DURICEF [Concomitant]
  5. TRAZODONE HCL [Concomitant]
     Dates: start: 20070101
  6. SEASONALE [Concomitant]
     Dates: start: 20080101
  7. NUVIGIL [Suspect]
     Indication: FIBROMYALGIA
     Dosage: 250 MILLIGRAM;
     Route: 048
     Dates: start: 20110519, end: 20110519

REACTIONS (3)
  - DIARRHOEA [None]
  - INSOMNIA [None]
  - FATIGUE [None]
